FAERS Safety Report 7008825-3 (Version None)
Quarter: 2010Q3

REPORT INFORMATION
  Report Type: 
  Country: None (occurrence: None)
  Receive Date: 20100922
  Receipt Date: 20100908
  Transmission Date: 20110219
  Serious: Yes (Death)
  Sender: FDA-Public Use
  Company Number: SE-MYLANLABS-2010S1016515

PATIENT
  Age: 20 Year
  Sex: Female

DRUGS (5)
  1. SODIUM OXYBATE [Suspect]
     Indication: SUBSTANCE ABUSE
     Route: 065
  2. CITALOPRAM HYDROBROMIDE [Suspect]
     Route: 065
  3. SALICYLIC ACID [Suspect]
     Route: 065
  4. AMFETAMINE [Suspect]
     Indication: SUBSTANCE ABUSE
     Route: 065
  5. COCAINE [Suspect]
     Indication: SUBSTANCE ABUSE
     Route: 065

REACTIONS (2)
  - DRUG TOXICITY [None]
  - OVERDOSE [None]
